FAERS Safety Report 26130898 (Version 1)
Quarter: 2025Q4

REPORT INFORMATION
  Report Type: Report from Study
  Country: CN (occurrence: CN)
  Receive Date: 20251208
  Receipt Date: 20251208
  Transmission Date: 20260117
  Serious: Yes (Other)
  Sender: ROCHE
  Company Number: CN-ROCHE-10000448934

PATIENT

DRUGS (4)
  1. RITUXIMAB [Suspect]
     Active Substance: RITUXIMAB
     Indication: Diffuse large B-cell lymphoma refractory
     Route: 065
  2. ZANUBRUTINIB [Suspect]
     Active Substance: ZANUBRUTINIB
     Indication: Diffuse large B-cell lymphoma refractory
     Route: 065
  3. BENDAMUSTINE [Suspect]
     Active Substance: BENDAMUSTINE
     Indication: Diffuse large B-cell lymphoma refractory
     Route: 065
  4. LENALIDOMIDE [Suspect]
     Active Substance: LENALIDOMIDE
     Indication: Diffuse large B-cell lymphoma refractory
     Route: 065

REACTIONS (30)
  - Neutropenia [Unknown]
  - Thrombocytopenia [Unknown]
  - White blood cell count decreased [Unknown]
  - Lymphocyte count decreased [Unknown]
  - Anaemia [Unknown]
  - Febrile neutropenia [Unknown]
  - Pneumonia [Unknown]
  - Nausea [Unknown]
  - Decreased appetite [Unknown]
  - Pyrexia [Unknown]
  - Alanine aminotransferase increased [Unknown]
  - Aspartate aminotransferase increased [Unknown]
  - Infusion related reaction [Unknown]
  - Vomiting [Unknown]
  - C-reactive protein increased [Unknown]
  - Constipation [Unknown]
  - Renal impairment [Unknown]
  - Stomatitis [Unknown]
  - Rash [Unknown]
  - Weight decreased [Unknown]
  - Blood creatinine increased [Unknown]
  - Taste disorder [Unknown]
  - Pruritus [Unknown]
  - Hyperkalaemia [Unknown]
  - Vasculitis [Unknown]
  - Hypokalaemia [Unknown]
  - Haemorrhage [Unknown]
  - Hypertension [Unknown]
  - Atrial fibrillation [Unknown]
  - Arthralgia [Unknown]
